FAERS Safety Report 24071393 (Version 2)
Quarter: 2024Q3

REPORT INFORMATION
  Report Type: Report from Study
  Country: PY (occurrence: PY)
  Receive Date: 20240710
  Receipt Date: 20240710
  Transmission Date: 20241017
  Serious: No
  Sender: ROCHE
  Company Number: PY-ROCHE-3547176

PATIENT
  Age: 10 Month
  Sex: Female
  Weight: 7.2 kg

DRUGS (1)
  1. EVRYSDI [Suspect]
     Active Substance: RISDIPLAM
     Indication: Spinal muscular atrophy
     Route: 050
     Dates: start: 20240409

REACTIONS (3)
  - Bronchitis [Not Recovered/Not Resolved]
  - Cough [Not Recovered/Not Resolved]
  - Catarrh [Not Recovered/Not Resolved]

NARRATIVE: CASE EVENT DATE: 20240410
